FAERS Safety Report 12639773 (Version 1)
Quarter: 2016Q3

REPORT INFORMATION
  Report Type: Spontaneous
  Country: US (occurrence: US)
  Receive Date: 20160810
  Receipt Date: 20160810
  Transmission Date: 20161109
  Serious: No
  Sender: FDA-Public Use
  Company Number: US-AMGEN-USASP2016100289

PATIENT
  Age: 67 Year
  Sex: Female

DRUGS (1)
  1. ENBREL [Suspect]
     Active Substance: ETANERCEPT
     Indication: RHEUMATOID ARTHRITIS
     Dosage: UNK, QWK
     Route: 065
     Dates: start: 2014

REACTIONS (9)
  - Musculoskeletal pain [Recovering/Resolving]
  - Hypertension [Recovering/Resolving]
  - Feeling abnormal [Recovering/Resolving]
  - Pain [Recovering/Resolving]
  - Arthralgia [Recovering/Resolving]
  - Musculoskeletal disorder [Recovering/Resolving]
  - Discomfort [Recovering/Resolving]
  - Pain in extremity [Recovering/Resolving]
  - Back pain [Not Recovered/Not Resolved]
